FAERS Safety Report 24758873 (Version 1)
Quarter: 2024Q4

REPORT INFORMATION
  Report Type: Spontaneous
  Country: SE (occurrence: SE)
  Receive Date: 20241220
  Receipt Date: 20241220
  Transmission Date: 20250115
  Serious: Yes (Life-Threatening)
  Sender: ACCORD
  Company Number: None

PATIENT
  Age: 40 Year
  Sex: Female
  Weight: 80 kg

DRUGS (2)
  1. ESCITALOPRAM [Suspect]
     Active Substance: ESCITALOPRAM OXALATE
     Indication: Depression
     Dosage: ESCITALOPRAM OXALATE STRENGTH: 25.552MG, ESCITALOPRAM STRENGTH: 20MG, 50 MG DOSE: LATER DOSE
     Dates: start: 20170615, end: 20181208
  2. QUETIAPINE [Concomitant]
     Active Substance: QUETIAPINE
     Dosage: QUETIAPINE FUMARATE STRENGTH: 115.12MG, QUETIAPINE STRENGTH: 100MG
     Dates: start: 20180606, end: 20180715

REACTIONS (4)
  - Urinary retention [Unknown]
  - Neuroleptic malignant syndrome [Recovered/Resolved]
  - Eye movement disorder [Unknown]
  - Neck pain [Unknown]

NARRATIVE: CASE EVENT DATE: 20180615
